FAERS Safety Report 22063504 (Version 1)
Quarter: 2023Q1

REPORT INFORMATION
  Report Type: Spontaneous
  Country: US (occurrence: US)
  Receive Date: 20230306
  Receipt Date: 20230306
  Transmission Date: 20230418
  Serious: No
  Sender: FDA-Public Use
  Company Number: US-TEVA-2023-US-2858751

PATIENT
  Age: 90 Year
  Sex: Female

DRUGS (2)
  1. CHLORDIAZEPOXIDE HYDROCHLORIDE [Suspect]
     Active Substance: CHLORDIAZEPOXIDE HYDROCHLORIDE
     Indication: Restless legs syndrome
     Route: 065
     Dates: start: 1957
  2. CHLORDIAZEPOXIDE HYDROCHLORIDE [Suspect]
     Active Substance: CHLORDIAZEPOXIDE HYDROCHLORIDE
     Indication: Anxiety

REACTIONS (5)
  - Nightmare [Unknown]
  - Product use in unapproved indication [Unknown]
  - Adverse event [Unknown]
  - Blood pressure increased [Unknown]
  - Product quality issue [Unknown]

NARRATIVE: CASE EVENT DATE: 20230101
